FAERS Safety Report 11227684 (Version 1)
Quarter: 2015Q2

REPORT INFORMATION
  Report Type: Spontaneous
  Country: US (occurrence: US)
  Receive Date: 20150630
  Receipt Date: 20150630
  Transmission Date: 20150821
  Serious: Yes (Hospitalization)
  Sender: FDA-Public Use
  Company Number: US-AUROBINDO-AUR-APL-2015-05375

PATIENT

DRUGS (1)
  1. OLANZAPINE. [Suspect]
     Active Substance: OLANZAPINE
     Indication: PRODUCT USED FOR UNKNOWN INDICATION
     Route: 065

REACTIONS (7)
  - Anticholinergic syndrome [Unknown]
  - Dry skin [Unknown]
  - Gastrointestinal sounds abnormal [Unknown]
  - Coma [Recovered/Resolved]
  - Urinary retention [Unknown]
  - Overdose [Unknown]
  - Miosis [Unknown]
